FAERS Safety Report 9692782 (Version 5)
Quarter: 2014Q1

REPORT INFORMATION
  Report Type: Spontaneous
  Country: IT (occurrence: IT)
  Receive Date: 20131118
  Receipt Date: 20140224
  Transmission Date: 20141002
  Serious: Yes (Disabling)
  Sender: FDA-Public Use
  Company Number: IT-ROCHE-1304297

PATIENT
  Age: 60 Year
  Sex: Male
  Weight: 48 kg

DRUGS (13)
  1. XELODA [Suspect]
     Indication: LARYNGEAL CANCER METASTATIC
     Route: 048
     Dates: start: 20130625, end: 20130906
  2. CISPLATIN [Suspect]
     Indication: LARYNGEAL CANCER METASTATIC
     Route: 042
     Dates: start: 201301, end: 201303
  3. CISPLATIN [Suspect]
     Route: 042
     Dates: start: 20130625, end: 20130829
  4. ERBITUX [Suspect]
     Indication: LARYNGEAL CANCER METASTATIC
     Route: 042
     Dates: start: 20130625, end: 20130906
  5. EMEND [Concomitant]
     Indication: PROPHYLAXIS OF NAUSEA AND VOMITING
     Route: 048
     Dates: start: 20130625, end: 20130906
  6. SOLDESAM [Concomitant]
     Indication: PROPHYLAXIS OF NAUSEA AND VOMITING
  7. ONDANSETRON [Concomitant]
  8. CHLORPHENAMINE [Concomitant]
  9. EPOETIN BETA [Concomitant]
     Indication: ANAEMIA
     Route: 058
     Dates: start: 20130806
  10. OMEPRAZOLE [Concomitant]
     Route: 048
  11. FERLIXIT [Concomitant]
     Dosage: VIAL 62.5MG/5ML
     Route: 065
     Dates: start: 20130813, end: 20130905
  12. CALCIUM SANDOZ (ITALY) [Concomitant]
     Route: 065
  13. AMINOTROFIC [Concomitant]
     Route: 048

REACTIONS (1)
  - Cerebral ischaemia [Recovering/Resolving]
